FAERS Safety Report 21973313 (Version 1)
Quarter: 2023Q1

REPORT INFORMATION
  Report Type: Spontaneous
  Country: US (occurrence: US)
  Receive Date: 20230209
  Receipt Date: 20230209
  Transmission Date: 20230418
  Serious: No
  Sender: FDA-Public Use
  Company Number: US-SA-SAC20230207001267

PATIENT
  Sex: Male
  Weight: 88 kg

DRUGS (3)
  1. DUPIXENT [Suspect]
     Active Substance: DUPILUMAB
     Indication: Illness
     Dosage: 300 MG, QOW
     Route: 058
  2. SEGLENTIS [Concomitant]
     Active Substance: CELECOXIB\TRAMADOL HYDROCHLORIDE
  3. ZYLET [Concomitant]
     Active Substance: LOTEPREDNOL ETABONATE\TOBRAMYCIN

REACTIONS (2)
  - Lacrimation increased [Unknown]
  - Inappropriate schedule of product administration [Unknown]
